FAERS Safety Report 4799927-0 (Version None)
Quarter: 2005Q4

REPORT INFORMATION
  Report Type: 
  Country: None (occurrence: None)
  Receive Date: 20051017
  Receipt Date: 20051006
  Transmission Date: 20060501
  Serious: Yes (Other)
  Sender: FDA-Public Use
  Company Number: US-BOEHRINGER INGELHEIM PHARMACEUTICALS, INC.-2005-DE-04130GD

PATIENT

DRUGS (3)
  1. CLONIDINE [Suspect]
     Indication: DRUG DETOXIFICATION
     Dosage: UP TO 0.2 MG EVERY 4 H, MAXIMUM 1.2 MG/D
  2. CLONAZEPAM [Suspect]
     Indication: DRUG WITHDRAWAL SYNDROME
     Dosage: UP TO 2 MG EVERY 8 H WITH ADDITIONAL DOSING FOR SEVERE PERSISTENT WITHDRAWAL
  3. NALTREXONE [Suspect]
     Indication: DRUG DETOXIFICATION
     Dosage: ON DAY 7 WITH AN INITIAL DOSE OF 12.5 MG, FOLLOWED BY 25 MG THE NEXT DAY AND 50 MG ON SUBSEQUENT DAY

REACTIONS (1)
  - BIPOLAR I DISORDER [None]
